FAERS Safety Report 5711404-9 (Version None)
Quarter: 2008Q2

REPORT INFORMATION
  Report Type: 
  Country: None (occurrence: None)
  Receive Date: 20080421
  Receipt Date: 20080410
  Transmission Date: 20081010
  Serious: Yes (Hospitalization)
  Sender: FDA-Public Use
  Company Number: GB-ROCHE-557818

PATIENT
  Sex: Female
  Weight: 116.1 kg

DRUGS (1)
  1. XENICAL [Suspect]
     Indication: OBESITY
     Route: 048
     Dates: start: 20080129, end: 20080320

REACTIONS (2)
  - DIARRHOEA [None]
  - MALAISE [None]
